FAERS Safety Report 8847997 (Version 2)
Quarter: 2015Q3

REPORT INFORMATION
  Report Type: Report from Study
  Country: US (occurrence: US)
  Receive Date: 20121018
  Receipt Date: 20150820
  Transmission Date: 20151125
  Serious: Yes (Other)
  Sender: FDA-Public Use
  Company Number: US-ROCHE-1141250

PATIENT
  Sex: Female
  Weight: 51.8 kg

DRUGS (4)
  1. PROVENTIL [Concomitant]
     Active Substance: ALBUTEROL
     Route: 065
  2. PROTROPIN [Suspect]
     Active Substance: SOMATREM
     Route: 058
     Dates: start: 199406
  3. PROTROPIN [Suspect]
     Active Substance: SOMATREM
     Indication: TURNER^S SYNDROME
     Route: 058
  4. PROTROPIN [Suspect]
     Active Substance: SOMATREM
     Route: 058

REACTIONS (3)
  - Hand fracture [Recovered/Resolved]
  - Weight increased [Recovered/Resolved]
  - Conduct disorder [Unknown]
